FAERS Safety Report 4465370-7 (Version None)
Quarter: 2004Q3

REPORT INFORMATION
  Report Type: 
  Country: None (occurrence: None)
  Receive Date: 20040929
  Receipt Date: 20040920
  Transmission Date: 20050211
  Serious: Yes (Other)
  Sender: FDA-Public Use
  Company Number: 2004UW19583

PATIENT
  Age: 41 Year
  Sex: Male

DRUGS (5)
  1. SEROQUEL [Suspect]
     Dosage: 750 MG QD PO
     Route: 048
  2. DEPAKOTE [Concomitant]
  3. LORAZEPAM [Concomitant]
  4. LUVOX [Concomitant]
  5. ALBUTEROL [Concomitant]

REACTIONS (1)
  - LEUKOPENIA [None]
